FAERS Safety Report 23695570 (Version 1)
Quarter: 2024Q2

REPORT INFORMATION
  Report Type: Spontaneous
  Country: GR (occurrence: GR)
  Receive Date: 20240402
  Receipt Date: 20240402
  Transmission Date: 20240715
  Serious: Yes (Other)
  Sender: FDA-Public Use
  Company Number: GR-CELLTRION INC.-2024GR007474

PATIENT

DRUGS (2)
  1. ADALIMUMAB [Suspect]
     Active Substance: ADALIMUMAB\ISOPROPYL ALCOHOL
     Indication: Polychondritis
     Dosage: UNKNOWN
     Route: 065
  2. METHOTREXATE [Concomitant]
     Active Substance: METHOTREXATE
     Indication: Polychondritis
     Dosage: UNKNOWN
     Route: 058

REACTIONS (2)
  - Polychondritis [Recovered/Resolved]
  - Off label use [Unknown]
